FAERS Safety Report 15849416 (Version 2)
Quarter: 2019Q1

REPORT INFORMATION
  Report Type: Spontaneous
  Country: DE (occurrence: DE)
  Receive Date: 20190121
  Receipt Date: 20190125
  Transmission Date: 20190417
  Serious: Yes (Hospitalization)
  Sender: FDA-Public Use
  Company Number: DE-PFIZER INC-2019020578

PATIENT
  Age: 13 Year
  Sex: Female
  Weight: 32 kg

DRUGS (5)
  1. L-THYROXIN [LEVOTHYROXINE SODIUM] [Concomitant]
     Indication: HYPOTHYROIDISM
     Dosage: DAILY DOSE: 25 UG MICROGRAM(S) EVERY DAYS
     Route: 048
  2. ANTITHYMOCYTE IMMUNOGLOBULIN [Suspect]
     Active Substance: THYMOCYTE IMMUNE GLOBULIN NOS
     Dosage: 550 MG, UNK
     Route: 042
  3. MABTHERA [Suspect]
     Active Substance: RITUXIMAB
     Dosage: 430 MG, UNK
     Route: 042
     Dates: start: 20170724, end: 20170724
  4. METHYLPREDNISOLONE SODIUM SUCCINATE. [Suspect]
     Active Substance: METHYLPREDNISOLONE SODIUM SUCCINATE
     Dosage: UNK
     Route: 042
  5. COLCHICINUM DISPERT [Concomitant]
     Indication: FAMILIAL MEDITERRANEAN FEVER
     Dosage: DAILY DOSE: 1.5 MG MILLGRAM(S) EVERY DAYS
     Route: 048

REACTIONS (4)
  - Pulmonary cavitation [Not Recovered/Not Resolved]
  - Haemoptysis [Not Recovered/Not Resolved]
  - Chest pain [Not Recovered/Not Resolved]
  - Aspergilloma [Not Recovered/Not Resolved]

NARRATIVE: CASE EVENT DATE: 20181025
